FAERS Safety Report 6505779-0 (Version None)
Quarter: 2009Q4

REPORT INFORMATION
  Report Type: 
  Country: None (occurrence: None)
  Receive Date: 20091217
  Receipt Date: 20091217
  Transmission Date: 20100525
  Serious: Yes (Hospitalization)
  Sender: FDA-Public Use
  Company Number: None

PATIENT
  Sex: Female
  Weight: 99.54 kg

DRUGS (2)
  1. CISPLATIN [Suspect]
     Dosage: 60 MG
  2. ERBITUX [Suspect]
     Dosage: 500 MG

REACTIONS (6)
  - BRONCHITIS [None]
  - HAEMOGLOBIN DECREASED [None]
  - NAUSEA [None]
  - PELVIC PAIN [None]
  - URINARY TRACT INFECTION [None]
  - VOMITING [None]
